FAERS Safety Report 16236985 (Version 1)
Quarter: 2019Q2

REPORT INFORMATION
  Report Type: Spontaneous
  Country: US (occurrence: US)
  Receive Date: 20190425
  Receipt Date: 20190425
  Transmission Date: 20190711
  Serious: No
  Sender: FDA-Public Use
  Company Number: US-CELGENEUS-USA-20190408886

PATIENT
  Age: 73 Year
  Sex: Female

DRUGS (1)
  1. REVLIMID [Suspect]
     Active Substance: LENALIDOMIDE
     Indication: PLASMA CELL MYELOMA
     Dosage: 25 MILLIGRAM
     Route: 048
     Dates: start: 20190321

REACTIONS (5)
  - Pain in extremity [Unknown]
  - Insomnia [Unknown]
  - Tremor [Unknown]
  - Feeling jittery [Unknown]
  - Myalgia [Unknown]

NARRATIVE: CASE EVENT DATE: 20190401
